FAERS Safety Report 8373149-9 (Version None)
Quarter: 2012Q2

REPORT INFORMATION
  Report Type: 
  Country: None (occurrence: None)
  Receive Date: 20120521
  Receipt Date: 20120514
  Transmission Date: 20120825
  Serious: Yes (Death, Disabling, Other)
  Sender: FDA-Public Use
  Company Number: US-BAYER-2012-047624

PATIENT
  Age: 50 Year
  Sex: Female

DRUGS (1)
  1. YASMIN [Suspect]
     Indication: DYSFUNCTIONAL UTERINE BLEEDING
     Dosage: UNK
     Dates: start: 20070326

REACTIONS (5)
  - PAIN [None]
  - ACUTE RESPIRATORY FAILURE [None]
  - LOSS OF CONSCIOUSNESS [None]
  - PULMONARY EMBOLISM [None]
  - CARDIOGENIC SHOCK [None]
